FAERS Safety Report 23598027 (Version 1)
Quarter: 2024Q1

REPORT INFORMATION
  Report Type: Spontaneous
  Country: CN (occurrence: CN)
  Receive Date: 20240305
  Receipt Date: 20240305
  Transmission Date: 20240410
  Serious: Yes (Other)
  Sender: FDA-Public Use
  Company Number: CN-PFIZER INC-PV202400029771

PATIENT
  Age: 60 Year
  Sex: Female
  Weight: 65 kg

DRUGS (7)
  1. EPIRUBICIN HYDROCHLORIDE [Suspect]
     Active Substance: EPIRUBICIN HYDROCHLORIDE
     Indication: Breast cancer
     Dosage: 130 MG, 1X/DAY
     Route: 041
     Dates: start: 20240225, end: 20240225
  2. CYCLOPHOSPHAMIDE [Suspect]
     Active Substance: CYCLOPHOSPHAMIDE
     Indication: Breast cancer
     Dosage: 0.9 G, 1X/DAY
     Route: 042
     Dates: start: 20240225, end: 20240225
  3. SHEN MAI [OPHIOPOGON JAPONICUS ROOT TUBER;PANAX GINSENG] [Concomitant]
     Indication: Nutritional supplementation
     Dosage: 60 ML, 1X/DAY
     Route: 041
     Dates: start: 20240225, end: 20240226
  4. SODIUM CHLORIDE [Concomitant]
     Active Substance: SODIUM CHLORIDE
     Indication: Vehicle solution use
     Dosage: 50 ML, 1X/DAY
     Route: 042
     Dates: start: 20240225, end: 20240225
  5. SODIUM CHLORIDE [Concomitant]
     Active Substance: SODIUM CHLORIDE
     Indication: Vehicle solution use
     Dosage: 500 ML, 1X/DAY
     Route: 041
     Dates: start: 20240225, end: 20240225
  6. ONDANSETRON HYDROCHLORIDE [Concomitant]
     Active Substance: ONDANSETRON HYDROCHLORIDE
     Indication: Prophylaxis
     Dosage: 8 MG, 1X/DAY
     Route: 041
     Dates: start: 20240225, end: 20240226
  7. DEXTROSE [Concomitant]
     Active Substance: DEXTROSE\DEXTROSE MONOHYDRATE
     Indication: Vehicle solution use
     Dosage: 250ML

REACTIONS (3)
  - Hypoaesthesia [Recovering/Resolving]
  - Vomiting [Recovering/Resolving]
  - Nausea [Recovering/Resolving]

NARRATIVE: CASE EVENT DATE: 20240226
